FAERS Safety Report 17540066 (Version 1)
Quarter: 2020Q1

REPORT INFORMATION
  Report Type: Spontaneous
  Country: US (occurrence: US)
  Receive Date: 20200313
  Receipt Date: 20200313
  Transmission Date: 20200409
  Serious: No
  Sender: FDA-Public Use
  Company Number: US-SA-2020SA065438

PATIENT
  Age: 47 Year
  Sex: Female

DRUGS (1)
  1. CAPRELSA [Suspect]
     Active Substance: VANDETANIB
     Indication: THYROID CANCER
     Dosage: 300 MG, QD (IN THE MORNING)
     Route: 048
     Dates: start: 20191016

REACTIONS (4)
  - Chest pain [Unknown]
  - Heart rate increased [Unknown]
  - Diarrhoea [Unknown]
  - Abdominal pain upper [Unknown]
